FAERS Safety Report 10290700 (Version 1)
Quarter: 2014Q3

REPORT INFORMATION
  Report Type: Spontaneous
  Country: US (occurrence: None)
  Receive Date: 20140708
  Receipt Date: 20140708
  Transmission Date: 20150326
  Serious: Yes (Life-Threatening, Hospitalization, Disabling, Other)
  Sender: FDA-Public Use
  Company Number: None

PATIENT
  Age: 66 Year
  Sex: Female
  Weight: 68.04 kg

DRUGS (2)
  1. AVELOX [Suspect]
     Active Substance: MOXIFLOXACIN HYDROCHLORIDE
     Indication: EAR INFECTION
     Dates: start: 20090327, end: 20090405
  2. HEPARIN [Suspect]
     Active Substance: HEPARIN SODIUM
     Indication: HAEMORRHAGIC STROKE
     Dates: start: 20090330, end: 20080407

REACTIONS (2)
  - Thrombosis [None]
  - Heparin-induced thrombocytopenia [None]

NARRATIVE: CASE EVENT DATE: 20140702
